FAERS Safety Report 19414377 (Version 1)
Quarter: 2021Q2

REPORT INFORMATION
  Report Type: Spontaneous
  Country: US (occurrence: US)
  Receive Date: 20210614
  Receipt Date: 20210614
  Transmission Date: 20210717
  Serious: No
  Sender: FDA-Public Use
  Company Number: US-ORGANON-O2106USA000787

PATIENT
  Age: 20 Year
  Sex: Female
  Weight: 125.17 kg

DRUGS (1)
  1. NEXPLANON [Suspect]
     Active Substance: ETONOGESTREL
     Indication: CONTRACEPTION
     Dosage: 68MG EVERY 3 YEARS
     Route: 059
     Dates: start: 201910, end: 20210604

REACTIONS (5)
  - Implant site fibrosis [Recovered/Resolved]
  - Implant site pain [Recovered/Resolved]
  - Menstruation irregular [Recovered/Resolved]
  - Device breakage [Recovered/Resolved]
  - Device kink [Recovered/Resolved]

NARRATIVE: CASE EVENT DATE: 20210604
